FAERS Safety Report 20854227 (Version 1)
Quarter: 2022Q2

REPORT INFORMATION
  Report Type: Spontaneous
  Country: AU (occurrence: AU)
  Receive Date: 20220520
  Receipt Date: 20220520
  Transmission Date: 20220721
  Serious: Yes (Death)
  Sender: FDA-Public Use
  Company Number: AU-BAUSCH-BL-2022-012314

PATIENT
  Age: 22 Year
  Sex: Female

DRUGS (8)
  1. DEXAMETHASONE [Suspect]
     Active Substance: DEXAMETHASONE
     Indication: Adjuvant therapy
     Route: 065
  2. METRONIDAZOLE [Suspect]
     Active Substance: METRONIDAZOLE
     Indication: Antibiotic therapy
     Route: 065
     Dates: start: 201104, end: 201104
  3. LINCOMYCIN HYDROCHLORIDE [Suspect]
     Active Substance: LINCOMYCIN HYDROCHLORIDE
     Indication: Diphtheria
     Route: 042
     Dates: start: 201104
  4. LINCOMYCIN HYDROCHLORIDE [Suspect]
     Active Substance: LINCOMYCIN HYDROCHLORIDE
     Indication: Corynebacterium infection
  5. DIPHTHERIA ANTITOXIN [Suspect]
     Active Substance: DIPHTHERIA ANTITOXIN
     Indication: Diphtheria
     Route: 042
     Dates: start: 201104
  6. PENICILLIN G SODIUM [Concomitant]
     Active Substance: PENICILLIN G SODIUM
     Indication: Antibiotic therapy
  7. MEROPENEM [Concomitant]
     Active Substance: MEROPENEM
     Indication: Corynebacterium infection
     Dates: start: 201104
  8. PENICILLIN V [Concomitant]
     Active Substance: PENICILLIN V
     Indication: Antibiotic therapy
     Dates: start: 201104, end: 201104

REACTIONS (1)
  - Drug ineffective [Fatal]

NARRATIVE: CASE EVENT DATE: 20110401
